FAERS Safety Report 6533829-4 (Version None)
Quarter: 2010Q1

REPORT INFORMATION
  Report Type: 
  Country: None (occurrence: None)
  Receive Date: 20100111
  Receipt Date: 20091217
  Transmission Date: 20100710
  Serious: No
  Sender: FDA-Public Use
  Company Number: US-ABBOTT-09P-163-0615048-00

PATIENT
  Sex: Male

DRUGS (4)
  1. VICODIN [Suspect]
     Indication: JOINT INJURY
     Dates: start: 20070101
  2. VICODIN [Suspect]
     Dates: end: 20091217
  3. DIVALPROEX SODIUM [Concomitant]
     Indication: EPILEPSY
     Dates: start: 19880101
  4. NEURONTIN [Concomitant]
     Indication: EPILEPSY
     Dates: start: 19990101

REACTIONS (2)
  - ARTHRALGIA [None]
  - DRUG DEPENDENCE [None]
